FAERS Safety Report 16363779 (Version 2)
Quarter: 2019Q3

REPORT INFORMATION
  Report Type: Spontaneous
  Country: US (occurrence: US)
  Receive Date: 20190528
  Receipt Date: 20190725
  Transmission Date: 20191004
  Serious: Yes (Death, Hospitalization)
  Sender: FDA-Public Use
  Company Number: US-TAKEDA-2019TUS032023

PATIENT
  Sex: Female

DRUGS (2)
  1. NINLARO [Suspect]
     Active Substance: IXAZOMIB CITRATE
     Indication: RENAL CANCER
     Dosage: 3 MILLIGRAM
     Route: 048
     Dates: start: 20190507
  2. NINLARO [Suspect]
     Active Substance: IXAZOMIB CITRATE
     Dosage: 2.3 MILLIGRAM
     Route: 048

REACTIONS (6)
  - Hypotension [Unknown]
  - Pleural effusion [Unknown]
  - Death [Fatal]
  - Off label use [Unknown]
  - Pyrexia [Unknown]
  - Overdose [Unknown]
